FAERS Safety Report 23246103 (Version 1)
Quarter: 2023Q4

REPORT INFORMATION
  Report Type: Report from Study
  Country: CN (occurrence: CN)
  Receive Date: 20231130
  Receipt Date: 20231130
  Transmission Date: 20240109
  Serious: Yes (Other)
  Sender: FDA-Public Use
  Company Number: CN-002147023-NVSC2023CN254211

PATIENT
  Sex: Male

DRUGS (1)
  1. LEQVIO [Suspect]
     Active Substance: INCLISIRAN SODIUM
     Indication: Hyperlipidaemia
     Dosage: 1.5 ML (AFTER THE FIRST INJECTION, THE DRUG WAS GIVEN AGAIN AT 3 MONTHS AND THEN EVERY 6 MONTHS)
     Route: 058
     Dates: start: 20231025

REACTIONS (1)
  - Blood pressure increased [Unknown]
